FAERS Safety Report 21532739 (Version 1)
Quarter: 2022Q4

REPORT INFORMATION
  Report Type: Spontaneous
  Country: JP (occurrence: JP)
  Receive Date: 20221101
  Receipt Date: 20221101
  Transmission Date: 20230113
  Serious: Yes (Other)
  Sender: FDA-Public Use
  Company Number: JP-SUN PHARMACEUTICAL INDUSTRIES LTD-2022RR-360902

PATIENT
  Age: 51 Year
  Sex: Male

DRUGS (4)
  1. AMLODIPINE [Suspect]
     Active Substance: AMLODIPINE BESYLATE
     Indication: Product used for unknown indication
     Dosage: 30 MILLIGRAM, UNK
     Route: 065
  2. TELMISARTAN [Suspect]
     Active Substance: TELMISARTAN
     Indication: Product used for unknown indication
     Dosage: 480 MILLIGRAM, UNK
     Route: 065
  3. LEVETIRACETAM [Suspect]
     Active Substance: LEVETIRACETAM
     Indication: Product used for unknown indication
     Dosage: 200.000 MILLIGRAM, UNK
     Route: 065
  4. bortizolam [Concomitant]
     Indication: Product used for unknown indication
     Dosage: 1.5 MILLIGRAM, UNK
     Route: 065

REACTIONS (3)
  - Overdose [Recovering/Resolving]
  - Acute kidney injury [Recovering/Resolving]
  - Suicide attempt [Unknown]
